FAERS Safety Report 4474927-9 (Version None)
Quarter: 2004Q3

REPORT INFORMATION
  Report Type: 
  Country: None (occurrence: None)
  Receive Date: 20040923
  Receipt Date: 20040707
  Transmission Date: 20050211
  Serious: No
  Sender: FDA-Public Use
  Company Number: USA040771871

PATIENT
  Age: 72 Year
  Sex: Female
  Weight: 64 kg

DRUGS (11)
  1. FORTEO [Suspect]
     Indication: OSTEOPOROSIS
     Dosage: 20 UG/1 DAY
     Dates: start: 20040621
  2. BENEFIBER (CYAMPOSIS TETRAGONOLOBUS GUM) [Concomitant]
  3. CALTRATE 600 PLUS VITAMIN D [Concomitant]
  4. HYDROCODONE [Concomitant]
  5. METOPROLOL SUCCINATE [Concomitant]
  6. LISINOPRIL [Concomitant]
  7. ALPHAGAN P [Concomitant]
  8. ARTHROTEC [Concomitant]
  9. GLUCOSAMINE [Concomitant]
  10. MULTIVITAMIN [Concomitant]
  11. .. [Concomitant]

REACTIONS (2)
  - FAECES DISCOLOURED [None]
  - INJECTION SITE PAIN [None]
